FAERS Safety Report 25399402 (Version 2)
Quarter: 2025Q2

REPORT INFORMATION
  Report Type: Spontaneous
  Country: US (occurrence: US)
  Receive Date: 20250605
  Receipt Date: 20250624
  Transmission Date: 20250717
  Serious: Yes (Death, Other)
  Sender: MERCK SHARP & DOHME LLC
  Company Number: US-009507513-2292229

PATIENT
  Age: 84 Year
  Sex: Female
  Weight: 65.771 kg

DRUGS (1)
  1. KEYTRUDA [Suspect]
     Active Substance: PEMBROLIZUMAB
     Dosage: 1 INJECTION EVERY 21 DAYS
     Dates: end: 20250420

REACTIONS (3)
  - Death [Fatal]
  - Hospice care [Unknown]
  - Sepsis [Unknown]

NARRATIVE: CASE EVENT DATE: 20250420
